FAERS Safety Report 13172358 (Version 1)
Quarter: 2017Q1

REPORT INFORMATION
  Report Type: Spontaneous
  Country: US (occurrence: US)
  Receive Date: 20170131
  Receipt Date: 20170131
  Transmission Date: 20170428
  Serious: No
  Sender: FDA-Public Use
  Company Number: US-ABBVIE-16K-163-1751944-00

PATIENT
  Age: 22 Year
  Sex: Female

DRUGS (2)
  1. HUMIRA [Suspect]
     Active Substance: ADALIMUMAB
     Indication: CROHN^S DISEASE
     Dosage: STARTED WITH 160 MG AND THEN 80 MG LOADING DOSES
     Route: 058
     Dates: start: 20160914, end: 20160914
  2. HUMIRA [Suspect]
     Active Substance: ADALIMUMAB
     Route: 058
     Dates: start: 201609, end: 201609

REACTIONS (4)
  - Pruritus [Not Recovered/Not Resolved]
  - Injection site reaction [Unknown]
  - Erythema [Not Recovered/Not Resolved]
  - Injection site reaction [Recovered/Resolved]

NARRATIVE: CASE EVENT DATE: 2016
